FAERS Safety Report 8884503 (Version 1)
Quarter: 2012Q4

REPORT INFORMATION
  Report Type: 
  Country: US (occurrence: US)
  Receive Date: 20121102
  Receipt Date: 20121102
  Transmission Date: 20130627
  Serious: No
  Sender: FDA-Public Use
  Company Number: US-ASTRAZENECA-2012SE17969

PATIENT
  Age: 62 Year
  Sex: Male
  Weight: 99.8 kg

DRUGS (3)
  1. CRESTOR [Suspect]
     Indication: BLOOD CHOLESTEROL INCREASED
     Route: 048
  2. WELLBUTRIN [Concomitant]
  3. LAMOTRIGINE [Concomitant]
     Indication: BIPOLAR DISORDER

REACTIONS (7)
  - Sleep disorder due to a general medical condition [Unknown]
  - Dyspnoea [Unknown]
  - Chronic obstructive pulmonary disease [Unknown]
  - Fatigue [Unknown]
  - Arthralgia [Unknown]
  - Musculoskeletal pain [Unknown]
  - Arthralgia [Unknown]
